FAERS Safety Report 8315217-3 (Version None)
Quarter: 2012Q2

REPORT INFORMATION
  Report Type: 
  Country: None (occurrence: None)
  Receive Date: 20120426
  Receipt Date: 20120410
  Transmission Date: 20120825
  Serious: Yes (Hospitalization, Other)
  Sender: FDA-Public Use
  Company Number: FR-PFIZER INC-2011096438

PATIENT
  Sex: Female

DRUGS (14)
  1. ZOLPIDEM [Concomitant]
     Dosage: UNK
  2. XANAX [Suspect]
     Dosage: 0.25MG, 3 DF DAILY
     Route: 048
  3. SERTRALINE HYDROCHLORIDE [Suspect]
     Dosage: 50 MG, 2X/DAY
     Route: 048
     Dates: start: 20070101, end: 20100901
  4. ACETAMINOPHEN [Concomitant]
     Dosage: UNK
  5. EQUANIL [Suspect]
     Dosage: 250 MG, 1X/DAY
     Route: 048
     Dates: end: 20100901
  6. MEMANTINE HYDROCHLORIDE [Concomitant]
     Dosage: 1 DF, UNK
  7. ATHYMIL [Suspect]
     Dosage: 10 MG, 1 DF PER DAY
     Route: 048
     Dates: start: 20091001, end: 20100901
  8. LEVOTHYROXINE SODIUM [Concomitant]
     Dosage: UNK
  9. CACIT D3 [Concomitant]
     Dosage: UNK
  10. ARICEPT [Suspect]
     Dosage: UNK
     Dates: start: 20070101, end: 20100901
  11. SIMVASTATIN [Concomitant]
     Dosage: UNK
  12. LEVOTHYROXINE SODIUM [Concomitant]
     Dosage: 125 UG, UNK
  13. DUPHALAC [Concomitant]
     Dosage: UNK
  14. ZOLPIDEM TARTRATE [Suspect]
     Dosage: 10 MG, 0.5 DF PER DAY
     Dates: end: 20100901

REACTIONS (6)
  - FALL [None]
  - HYPERNATRAEMIA [None]
  - HYPOTHYROIDISM [None]
  - MALNUTRITION [None]
  - CONFUSIONAL STATE [None]
  - DISORIENTATION [None]
